FAERS Safety Report 5241837-9 (Version None)
Quarter: 2007Q1

REPORT INFORMATION
  Report Type: 
  Country: None (occurrence: None)
  Receive Date: 20070220
  Receipt Date: 20070209
  Transmission Date: 20070707
  Serious: Yes (Disabling, Other)
  Sender: FDA-Public Use
  Company Number: US-JNJFOC-20061201369

PATIENT
  Sex: Male
  Weight: 86.18 kg

DRUGS (1)
  1. LEVAQUIN [Suspect]
     Indication: PNEUMONIA
     Route: 048

REACTIONS (5)
  - MUSCLE STRAIN [None]
  - OSTEOARTHRITIS [None]
  - PAIN [None]
  - PLANTAR FASCIITIS [None]
  - TENDON INJURY [None]
